FAERS Safety Report 10511033 (Version 1)
Quarter: 2014Q4

REPORT INFORMATION
  Report Type: Spontaneous
  Country: US (occurrence: US)
  Receive Date: 20141010
  Receipt Date: 20141010
  Transmission Date: 20150528
  Serious: Yes (Other)
  Sender: FDA-Public Use
  Company Number: US-PFIZER INC-2014277215

PATIENT
  Age: 72 Year
  Sex: Female
  Weight: 83 kg

DRUGS (5)
  1. GABAPENTIN. [Suspect]
     Active Substance: GABAPENTIN
     Indication: DIABETIC NEUROPATHY
     Dosage: 100 MG, 2X/DAY
     Route: 048
  2. TUMS [Concomitant]
     Active Substance: CALCIUM CARBONATE
     Indication: NAUSEA
     Dosage: 1 DF, 2X/DAY
  3. WARFARIN [Concomitant]
     Active Substance: WARFARIN
     Indication: HEART VALVE INCOMPETENCE
     Dosage: UNK
  4. GABAPENTIN. [Suspect]
     Active Substance: GABAPENTIN
     Dosage: 100 MG, 3X/DAY
     Route: 048
  5. GABAPENTIN. [Suspect]
     Active Substance: GABAPENTIN
     Dosage: 300 MG, 3X/DAY
     Route: 048

REACTIONS (8)
  - Bone pain [Unknown]
  - Paraesthesia [Unknown]
  - Skin discolouration [Unknown]
  - Suicidal ideation [Unknown]
  - Pain [Unknown]
  - Pain in extremity [Unknown]
  - Feeling of body temperature change [Unknown]
  - Drug ineffective for unapproved indication [Unknown]
